FAERS Safety Report 4915915-5 (Version None)
Quarter: 2006Q1

REPORT INFORMATION
  Report Type: 
  Country: None (occurrence: None)
  Receive Date: 20060214
  Receipt Date: 20060202
  Transmission Date: 20060701
  Serious: Yes (Hospitalization)
  Sender: FDA-Public Use
  Company Number: 430008M06USA

PATIENT
  Age: 64 Year
  Sex: Male
  Weight: 77.5 kg

DRUGS (28)
  1. NOVANTRONE [Suspect]
     Indication: ACUTE MYELOID LEUKAEMIA
     Dates: start: 20050923, end: 20050927
  2. CEP-701(INVESTIGATIONAL DRUG) [Suspect]
     Indication: ACUTE MYELOID LEUKAEMIA
     Dosage: 80  MCG, 2 IN 1 DAYS, ORAL
     Route: 048
     Dates: start: 20050930, end: 20051121
  3. ETOPOSIDE [Concomitant]
  4. CYTARABINE [Concomitant]
  5. TIMOLOL MALEATE [Concomitant]
  6. TRAVOPROST (TRAVOPOST) [Concomitant]
  7. AMBIEN [Concomitant]
  8. TYLENOL (COTYLENOL) [Concomitant]
  9. BENADRYL [Concomitant]
  10. DIPHENHYDRAMINE HCL [Concomitant]
  11. PROMETHAZINE HYDROCHLORIDE TAB [Concomitant]
  12. ACYCLOVIR [Concomitant]
  13. FLUCONAZOLE [Concomitant]
  14. HEPARIN [Concomitant]
  15. DEXAMETHASONE [Concomitant]
  16. ONDANSETRON [Concomitant]
  17. PRIMAXIN (PRIMAXIN) [Concomitant]
  18. LORAZEPAM [Concomitant]
  19. WITCH HAZEL (HAMAMELIS VIRGINIANA EXTRACT) [Concomitant]
  20. IMODIUM [Concomitant]
  21. PANTOPRAZOLE SODIUM [Concomitant]
  22. PREPARATION H CREAM (PREPARATION H) [Concomitant]
  23. ATENOLOL [Concomitant]
  24. DAPTOMYCIN (DAPTOMYCIN) [Concomitant]
  25. FILGRASTIM (FILGRASTIM) [Concomitant]
  26. LISINOPRIL [Concomitant]
  27. SODIUM CHLORIDE NASAL SPRAY (SODIUM CHLORIDE) [Concomitant]
  28. MAGNESIUM SULFATE [Concomitant]

REACTIONS (7)
  - BACTERIAL INFECTION [None]
  - CENTRAL LINE INFECTION [None]
  - CHILLS [None]
  - ENTEROBACTER INFECTION [None]
  - FATIGUE [None]
  - KLEBSIELLA INFECTION [None]
  - WHITE BLOOD CELL COUNT DECREASED [None]
